FAERS Safety Report 23289105 (Version 2)
Quarter: 2023Q4

REPORT INFORMATION
  Report Type: Report from Study
  Country: CL (occurrence: CL)
  Receive Date: 20231212
  Receipt Date: 20231226
  Transmission Date: 20240109
  Serious: Yes (Other)
  Sender: FDA-Public Use
  Company Number: CL-JNJFOC-20231217300

PATIENT
  Age: 61 Year
  Sex: Female

DRUGS (3)
  1. SIMPONI [Suspect]
     Active Substance: GOLIMUMAB
     Indication: Rheumatoid arthritis
     Dosage: LAST ADMINISTERED ADHERENCE ON 27-NOV-2023
     Route: 058
     Dates: start: 20220728
  2. SIMPONI [Suspect]
     Active Substance: GOLIMUMAB
     Route: 030
     Dates: start: 20220517
  3. NEUROBIONTA [Concomitant]

REACTIONS (3)
  - Osteoarthritis [Unknown]
  - Bronchitis [Unknown]
  - Off label use [Unknown]

NARRATIVE: CASE EVENT DATE: 20231101
